FAERS Safety Report 7819194-0 (Version None)
Quarter: 2011Q4

REPORT INFORMATION
  Report Type: 
  Country: None (occurrence: None)
  Receive Date: 20111012
  Receipt Date: 20111003
  Transmission Date: 20120403
  Serious: Yes (Other)
  Sender: FDA-Public Use
  Company Number: 2011MA008374

PATIENT
  Age: 21 Year
  Sex: Female

DRUGS (4)
  1. METOCLOPRAMIDE [Suspect]
     Indication: LABOUR PAIN
     Dosage: 10 MG, QD; IM
     Route: 030
     Dates: start: 20110609, end: 20110609
  2. MEPERIDINE HYDROCHLORIDE [Suspect]
     Indication: LABOUR PAIN
     Dosage: 100 MG; QD; IM
     Route: 030
     Dates: start: 20110609, end: 20110609
  3. FOLIC ACID [Concomitant]
  4. ACETAMINOPHEN AND CODEINE PHOSPHATE [Concomitant]

REACTIONS (2)
  - PSYCHOTIC DISORDER [None]
  - AGGRESSION [None]
